FAERS Safety Report 16964831 (Version 4)
Quarter: 2020Q3

REPORT INFORMATION
  Report Type: Spontaneous
  Country: US (occurrence: US)
  Receive Date: 20191028
  Receipt Date: 20200814
  Transmission Date: 20201102
  Serious: Yes (Other)
  Sender: FDA-Public Use
  Company Number: US-GILEAD-2019-0434675

PATIENT
  Age: 37 Year
  Sex: Male

DRUGS (2)
  1. TRUVADA [Suspect]
     Active Substance: EMTRICITABINE\TENOFOVIR DISOPROXIL FUMARATE
     Indication: HIV INFECTION
     Dosage: UNK
     Route: 048
     Dates: start: 201401, end: 201701
  2. SYMTUZA [Concomitant]
     Active Substance: COBICISTAT\DARUNAVIR\EMTRICITABINE\TENOFOVIR ALAFENAMIDE

REACTIONS (9)
  - Pain [Unknown]
  - Anxiety [Unknown]
  - Emotional distress [Unknown]
  - Bone loss [Not Recovered/Not Resolved]
  - Economic problem [Unknown]
  - Bone density decreased [Not Recovered/Not Resolved]
  - Anhedonia [Unknown]
  - Osteonecrosis [Unknown]
  - Tooth loss [Not Recovered/Not Resolved]

NARRATIVE: CASE EVENT DATE: 201701
